FAERS Safety Report 5723196-8 (Version None)
Quarter: 2008Q2

REPORT INFORMATION
  Report Type: 
  Country: None (occurrence: None)
  Receive Date: 20080425
  Receipt Date: 20080421
  Transmission Date: 20081010
  Serious: Yes (Hospitalization, Other)
  Sender: FDA-Public Use
  Company Number: 2007SP011918

PATIENT
  Age: 73 Year
  Sex: Female

DRUGS (12)
  1. TEMODAL [Suspect]
     Indication: GLIOBLASTOMA MULTIFORME
     Dosage: 154 MG/M2;QD;PO, 210 MG/M2;QD;PO, 210 MG/M2;QD;PO, 210 MG/M2;QD;PO
     Route: 048
     Dates: start: 20061206, end: 20070103
  2. TEMODAL [Suspect]
     Indication: GLIOBLASTOMA MULTIFORME
     Dosage: 154 MG/M2;QD;PO, 210 MG/M2;QD;PO, 210 MG/M2;QD;PO, 210 MG/M2;QD;PO
     Route: 048
     Dates: start: 20070104, end: 20070206
  3. TEMODAL [Suspect]
     Indication: GLIOBLASTOMA MULTIFORME
     Dosage: 154 MG/M2;QD;PO, 210 MG/M2;QD;PO, 210 MG/M2;QD;PO, 210 MG/M2;QD;PO
     Route: 048
     Dates: start: 20070207, end: 20070305
  4. TEMODAL [Suspect]
     Indication: GLIOBLASTOMA MULTIFORME
     Dosage: 154 MG/M2;QD;PO, 210 MG/M2;QD;PO, 210 MG/M2;QD;PO, 210 MG/M2;QD;PO
     Route: 048
     Dates: start: 20070306, end: 20070327
  5. BAKTAR [Concomitant]
  6. NASEA OD [Concomitant]
  7. NAUZELIN [Concomitant]
  8. MAGNESIUM OXIDE [Concomitant]
  9. CALBLOCK [Concomitant]
  10. LIPITOR [Concomitant]
  11. ALEVIATION [Concomitant]
  12. EXCEGRAN [Concomitant]

REACTIONS (2)
  - PLATELET COUNT DECREASED [None]
  - PNEUMONIA [None]
